FAERS Safety Report 24372560 (Version 1)
Quarter: 2024Q3

REPORT INFORMATION
  Report Type: Spontaneous
  Country: FR (occurrence: FR)
  Receive Date: 20240927
  Receipt Date: 20240927
  Transmission Date: 20241017
  Serious: Yes (Life-Threatening)
  Sender: ABBVIE
  Company Number: None

PATIENT
  Age: 53 Year
  Sex: Female

DRUGS (1)
  1. BOTULINUM TOXIN TYPE A [Suspect]
     Active Substance: BOTULINUM TOXIN TYPE A
     Indication: Skin cosmetic procedure
     Dosage: TIME INTERVAL: AS NECESSARY: BACTERIE/CLOSTRIDIUM BOTULINUM
     Route: 030
     Dates: start: 20240820, end: 20240820

REACTIONS (1)
  - Botulism [Not Recovered/Not Resolved]

NARRATIVE: CASE EVENT DATE: 20240822
